FAERS Safety Report 11496184 (Version 1)
Quarter: 2015Q3

REPORT INFORMATION
  Report Type: Spontaneous
  Country: US (occurrence: US)
  Receive Date: 20150911
  Receipt Date: 20150911
  Transmission Date: 20151125
  Serious: Yes (Other)
  Sender: FDA-Public Use
  Company Number: US-JNJFOC-20150902853

PATIENT

DRUGS (1)
  1. LEVOFLOXACIN. [Suspect]
     Active Substance: LEVOFLOXACIN
     Indication: PNEUMONIA
     Route: 065

REACTIONS (5)
  - Nausea [Unknown]
  - Vomiting [Unknown]
  - Electrocardiogram QT prolonged [Unknown]
  - Diarrhoea [Unknown]
  - Adverse event [Unknown]
